FAERS Safety Report 10058637 (Version 1)
Quarter: 2014Q2

REPORT INFORMATION
  Report Type: Spontaneous
  Country: KR (occurrence: None)
  Receive Date: 20140402
  Receipt Date: 20140402
  Transmission Date: 20141212
  Serious: Yes (Life-Threatening)
  Sender: FDA-Public Use
  Company Number: FK201401077

PATIENT
  Age: 31 Year
  Sex: Male
  Weight: 85 kg

DRUGS (3)
  1. ROCURONIUM [Suspect]
     Indication: GENERAL ANAESTHESIA
  2. PROPOFOL (PROPOFOL) (PROPOFOL) [Concomitant]
  3. MIDAZOLAM (MIDAZOLAM) (MIDAZOLAM) [Concomitant]

REACTIONS (1)
  - Anaphylactic reaction [None]
